FAERS Safety Report 6950071-3 (Version None)
Quarter: 2010Q3

REPORT INFORMATION
  Report Type: 
  Country: None (occurrence: None)
  Receive Date: 20100828
  Receipt Date: 20100126
  Transmission Date: 20110219
  Serious: No
  Sender: FDA-Public Use
  Company Number: US-ABBOTT-10P-163-0622939-00

PATIENT
  Sex: Male

DRUGS (3)
  1. NIASPAN [Suspect]
     Indication: HIGH DENSITY LIPOPROTEIN DECREASED
     Dates: start: 20100105
  2. SIMVASTATIN [Concomitant]
     Indication: HIGH DENSITY LIPOPROTEIN DECREASED
     Dosage: CUT DOWN TO 5 DAYS A WEEK WHEN NIASPAN WAS STARTED
     Dates: start: 20100105
  3. SIMVASTATIN [Concomitant]
     Dosage: SEVEN DAYS A WEEK

REACTIONS (1)
  - PARAESTHESIA [None]
